FAERS Safety Report 7748326-8 (Version None)
Quarter: 2011Q3

REPORT INFORMATION
  Report Type: 
  Country: None (occurrence: None)
  Receive Date: 20110913
  Receipt Date: 20110903
  Transmission Date: 20111222
  Serious: Yes (Other)
  Sender: FDA-Public Use
  Company Number: PHHY2011MX79589

PATIENT
  Sex: Female

DRUGS (2)
  1. CYMBALTA [Concomitant]
     Indication: ANTIDEPRESSANT THERAPY
     Dosage: 60 MG, QD
     Dates: start: 20110801
  2. ZOLEDRONOC ACID [Suspect]
     Indication: OSTEOPOROSIS
     Dosage: 5 MG/100 ML, ANNUALLY
     Route: 042
     Dates: start: 20110829

REACTIONS (5)
  - LACRIMATION INCREASED [None]
  - EXOPHTHALMOS [None]
  - OCULAR HYPERAEMIA [None]
  - EYE DISORDER [None]
  - EYE PAIN [None]
